FAERS Safety Report 24652699 (Version 2)
Quarter: 2024Q4

REPORT INFORMATION
  Report Type: Spontaneous
  Country: US (occurrence: US)
  Receive Date: 20241122
  Receipt Date: 20241212
  Transmission Date: 20250114
  Serious: No
  Sender: NUVO PHARMACEUTICALS
  Company Number: US-Nuvo Pharmaceuticals Inc-2165669

PATIENT

DRUGS (1)
  1. DEXTROAMPHETAMINE SACCHARATE, AMPHETAMINE ASPARTATE, DEXTROAMPHETAMINE [Suspect]
     Active Substance: AMPHETAMINE ASPARTATE\AMPHETAMINE SULFATE\DEXTROAMPHETAMINE SACCHARATE\DEXTROAMPHETAMINE SULFATE
     Indication: Product used for unknown indication

REACTIONS (8)
  - Impaired work ability [Unknown]
  - Product substitution issue [Unknown]
  - Therapeutic response changed [Unknown]
  - Drug ineffective [Unknown]
  - Disturbance in attention [Unknown]
  - Discomfort [Unknown]
  - Mental status changes [Unknown]
  - Impaired quality of life [Unknown]
